FAERS Safety Report 7520079-8 (Version None)
Quarter: 2011Q2

REPORT INFORMATION
  Report Type: 
  Country: None (occurrence: None)
  Receive Date: 20110602
  Receipt Date: 20110524
  Transmission Date: 20111010
  Serious: Yes (Hospitalization)
  Sender: FDA-Public Use
  Company Number: JP-B.I. PHARMACEUTICALS,INC./RIDGEFIELD-2011-BP-13871NB

PATIENT
  Age: 72 Year
  Sex: Female

DRUGS (5)
  1. HERBESSER R [Concomitant]
     Dosage: UNK
     Route: 048
  2. LASIX [Concomitant]
     Dosage: UNK
     Route: 048
  3. ENALAPRIL MALEATE [Concomitant]
     Dosage: UNK
     Route: 048
  4. NORVASC [Concomitant]
     Dosage: UNK
     Route: 048
  5. PRADAXA [Suspect]
     Indication: ATRIAL FIBRILLATION
     Dosage: 220 MG
     Route: 048
     Dates: start: 20110518, end: 20110519

REACTIONS (2)
  - DYSPNOEA [None]
  - ECZEMA [None]
